FAERS Safety Report 24923184 (Version 2)
Quarter: 2025Q3

REPORT INFORMATION
  Report Type: Spontaneous
  Country: BR (occurrence: BR)
  Receive Date: 20250204
  Receipt Date: 20250802
  Transmission Date: 20251021
  Serious: Yes (Hospitalization, Other)
  Sender: ALEXION PHARMACEUTICALS
  Company Number: BR-AstraZeneca-CH-00798240A

PATIENT
  Age: 86 Year
  Sex: Male

DRUGS (1)
  1. TAGRISSO [Suspect]
     Active Substance: OSIMERTINIB
     Indication: Lung adenocarcinoma stage IV
     Dosage: 80 MILLIGRAM, QD
     Dates: start: 202411

REACTIONS (2)
  - Thrombocytopenia [Unknown]
  - Subdural haemorrhage [Unknown]
